FAERS Safety Report 20028495 (Version 3)
Quarter: 2022Q1

REPORT INFORMATION
  Report Type: Spontaneous
  Country: AT (occurrence: AT)
  Receive Date: 20211103
  Receipt Date: 20220324
  Transmission Date: 20220423
  Serious: Yes (Other)
  Sender: FDA-Public Use
  Company Number: AT-TAKEDA-2021TUS065058

PATIENT
  Age: 77 Year
  Sex: Female

DRUGS (7)
  1. DEXAMETHASONE [Suspect]
     Active Substance: DEXAMETHASONE
     Indication: Plasma cell myeloma
     Dosage: UNK
     Route: 065
     Dates: start: 201705, end: 201712
  2. DEXAMETHASONE [Suspect]
     Active Substance: DEXAMETHASONE
     Dosage: UNK
     Route: 065
     Dates: start: 201810, end: 201910
  3. NINLARO [Suspect]
     Active Substance: IXAZOMIB CITRATE
     Indication: Plasma cell myeloma
     Route: 065
     Dates: start: 201705, end: 201712
  4. NINLARO [Suspect]
     Active Substance: IXAZOMIB CITRATE
     Dosage: UNK
     Route: 065
     Dates: start: 201810, end: 201910
  5. REVLIMID [Suspect]
     Active Substance: LENALIDOMIDE
     Indication: Plasma cell myeloma
     Dosage: UNK
     Route: 065
     Dates: start: 201810, end: 201910
  6. REVLIMID [Suspect]
     Active Substance: LENALIDOMIDE
     Dosage: UNK
     Route: 065
     Dates: start: 201705, end: 201712
  7. REVLIMID [Suspect]
     Active Substance: LENALIDOMIDE
     Dosage: UNK
     Route: 065
     Dates: end: 201810

REACTIONS (4)
  - Plasma cell myeloma [Unknown]
  - Diarrhoea [Unknown]
  - Drug intolerance [Unknown]
  - Off label use [Unknown]
